FAERS Safety Report 8615147-3 (Version None)
Quarter: 2012Q3

REPORT INFORMATION
  Report Type: 
  Country: None (occurrence: None)
  Receive Date: 20120814
  Receipt Date: 20120814
  Transmission Date: 20120928
  Serious: Yes (Life-Threatening)
  Sender: FDA-Public Use
  Company Number: None

PATIENT
  Age: 56 Year
  Sex: Male
  Weight: 92.9 kg

DRUGS (2)
  1. ENOXAPARIN [Suspect]
     Indication: ATRIAL FIBRILLATION
     Dosage: 80 ML SQ
     Route: 058
     Dates: start: 20110923, end: 20110927
  2. WARFARIN SODIUM [Suspect]
     Indication: CEREBROVASCULAR ACCIDENT PROPHYLAXIS
     Dosage: 5 MG EVERY DAY PO
     Route: 048
     Dates: start: 20110923, end: 20110927

REACTIONS (6)
  - HEMIPARESIS [None]
  - BRAIN MIDLINE SHIFT [None]
  - HEADACHE [None]
  - CONVULSION [None]
  - HYDROCEPHALUS [None]
  - HAEMORRHAGE INTRACRANIAL [None]
